FAERS Safety Report 8844910 (Version 1)
Quarter: 2012Q4

REPORT INFORMATION
  Report Type: Spontaneous
  Country: US (occurrence: None)
  Receive Date: 20120925
  Receipt Date: 20120925
  Transmission Date: 20130627
  Serious: Yes (Hospitalization)
  Sender: FDA-Public Use
  Company Number: RB-22875-2011

PATIENT
  Age: 39 Year
  Sex: Male

DRUGS (3)
  1. SUBOXONE [Suspect]
     Indication: DRUG DEPENDENCE
     Dosage: took various doses during self-tapering Sublingual
     Route: 060
     Dates: start: 2008, end: 201101
  2. SUBOXONE [Suspect]
     Indication: DRUG DEPENDENCE
     Dates: start: 201101, end: 20110216
  3. SUBOXONE [Suspect]
     Indication: DRUG DEPENDENCE
     Route: 060
     Dates: start: 20110217

REACTIONS (2)
  - Intentional drug misuse [None]
  - Drug withdrawal syndrome [None]
